FAERS Safety Report 15603598 (Version 1)
Quarter: 2018Q4

REPORT INFORMATION
  Report Type: Spontaneous
  Country: US (occurrence: US)
  Receive Date: 20181109
  Receipt Date: 20181109
  Transmission Date: 20190205
  Serious: No
  Sender: FDA-Public Use
  Company Number: US-NORTHSTAR HEALTHCARE HOLDINGS-US-2018NSR000092

PATIENT

DRUGS (3)
  1. BACLOFEN. [Suspect]
     Active Substance: BACLOFEN
     Dosage: 90 MG, TOTAL DAILY
     Route: 048
     Dates: start: 201509, end: 2017
  2. BACLOFEN. [Suspect]
     Active Substance: BACLOFEN
     Indication: STIFF PERSON SYNDROME
     Dosage: 60 MG, TOTAL DAILY
     Route: 048
     Dates: start: 2010, end: 201509
  3. BACLOFEN. [Suspect]
     Active Substance: BACLOFEN
     Dosage: 120 MG, TOTAL DAILY
     Route: 048
     Dates: start: 2017

REACTIONS (3)
  - Drug effect incomplete [Unknown]
  - Weight increased [Not Recovered/Not Resolved]
  - Product use issue [Unknown]

NARRATIVE: CASE EVENT DATE: 2010
